FAERS Safety Report 6192360-9 (Version None)
Quarter: 2009Q2

REPORT INFORMATION
  Report Type: 
  Country: None (occurrence: None)
  Receive Date: 20090518
  Receipt Date: 20090506
  Transmission Date: 20091009
  Serious: Yes (Hospitalization)
  Sender: FDA-Public Use
  Company Number: FR-JNJFOC-20090501532

PATIENT
  Age: 56 Year
  Sex: Male

DRUGS (8)
  1. REMICADE [Suspect]
     Route: 042
  2. REMICADE [Suspect]
     Indication: SPONDYLOARTHROPATHY
     Route: 042
  3. ALPRAZOLAM [Concomitant]
  4. TAHOR [Concomitant]
  5. IMOVANE [Concomitant]
  6. COTAREG [Concomitant]
  7. KLIPAL [Concomitant]
  8. TOPALGIC [Concomitant]

REACTIONS (6)
  - BALANCE DISORDER [None]
  - CEREBELLAR SYNDROME [None]
  - DEMYELINATION [None]
  - HEADACHE [None]
  - INFUSION RELATED REACTION [None]
  - VERTIGO [None]
